FAERS Safety Report 12134443 (Version 1)
Quarter: 2016Q1

REPORT INFORMATION
  Report Type: Spontaneous
  Country: US (occurrence: US)
  Receive Date: 20160301
  Receipt Date: 20160301
  Transmission Date: 20160526
  Serious: Yes (Hospitalization, Other)
  Sender: FDA-Public Use
  Company Number: US-BAYER-2016-035011

PATIENT
  Age: 22 Year
  Sex: Female
  Weight: 68.27 kg

DRUGS (2)
  1. MOTRIN [Concomitant]
     Active Substance: IBUPROFEN
  2. MIRENA [Suspect]
     Active Substance: LEVONORGESTREL
     Dosage: 20 MCG/24HR, CONT
     Route: 015
     Dates: start: 201003, end: 20131023

REACTIONS (6)
  - Genital haemorrhage [None]
  - Device issue [None]
  - Pain [None]
  - Drug ineffective [None]
  - Uterine perforation [None]
  - Pregnancy with contraceptive device [None]

NARRATIVE: CASE EVENT DATE: 201006
